FAERS Safety Report 6998488-5 (Version None)
Quarter: 2010Q3

REPORT INFORMATION
  Report Type: 
  Country: None (occurrence: None)
  Receive Date: 20100920
  Receipt Date: 20090720
  Transmission Date: 20110219
  Serious: Yes (Other)
  Sender: FDA-Public Use
  Company Number: US-ASTRAZENECA-2007UW12137

PATIENT
  Age: 42 Year
  Sex: Male
  Weight: 79.4 kg

DRUGS (12)
  1. SEROQUEL [Suspect]
     Indication: BIPOLAR DISORDER
     Dosage: 100-300 MG
     Route: 048
     Dates: start: 20031101, end: 20061001
  2. SEROQUEL [Suspect]
     Dosage: 200 MG - 300 MG
     Route: 048
     Dates: start: 20031206
  3. SEROQUEL [Suspect]
     Dosage: 200 MG - 300 MG QD
     Route: 048
     Dates: start: 20040201, end: 20050116
  4. SEROQUEL [Suspect]
     Route: 048
     Dates: start: 20050325, end: 20050425
  5. SEROQUEL [Suspect]
     Route: 048
     Dates: start: 20031201, end: 20060401
  6. ZOLOFT [Concomitant]
     Route: 048
  7. TOPAMAX [Concomitant]
     Dosage: STRENGTH 50 MG, 100 MG. DOSE 100 MG
     Route: 048
  8. TRAZODONE HCL [Concomitant]
     Route: 048
  9. ASPIRIN [Concomitant]
     Route: 048
  10. AMBIEN CR [Concomitant]
  11. LUNESTA [Concomitant]
  12. PENICILLIN VK [Concomitant]

REACTIONS (4)
  - BLOOD CHOLESTEROL INCREASED [None]
  - DIABETES MELLITUS INADEQUATE CONTROL [None]
  - DIABETIC COMA [None]
  - TYPE 2 DIABETES MELLITUS [None]
